FAERS Safety Report 10862980 (Version 7)
Quarter: 2016Q1

REPORT INFORMATION
  Report Type: Report from Study
  Country: US (occurrence: US)
  Receive Date: 20150223
  Receipt Date: 20160223
  Transmission Date: 20160525
  Serious: Yes (Hospitalization)
  Sender: FDA-Public Use
  Company Number: US-UCBSA-2015004793

PATIENT
  Age: 55 Year
  Sex: Male
  Weight: 82 kg

DRUGS (10)
  1. TOPAMAX [Concomitant]
     Active Substance: TOPIRAMATE
     Dosage: MAY BE 100 MG, 2X/DAY (BID)
     Route: 048
     Dates: start: 20150218
  2. VIMPAT [Suspect]
     Active Substance: LACOSAMIDE
     Indication: SEIZURE
     Dosage: UNK
     Dates: start: 201501
  3. LEVETIRACETAM. [Suspect]
     Active Substance: LEVETIRACETAM
     Dosage: 750 MG/ 2 TAB 2X DAY
     Route: 048
     Dates: start: 201501
  4. DILANTIN [Concomitant]
     Active Substance: PHENYTOIN
     Dosage: MAY BE 200 MG, TWICE DAILY
     Route: 048
     Dates: start: 1993
  5. DILANTIN [Concomitant]
     Active Substance: PHENYTOIN
     Indication: SEIZURE
     Dosage: 100 MG, 5X/DAY
     Route: 048
  6. LEVETIRACETAM. [Concomitant]
     Active Substance: LEVETIRACETAM
     Indication: PRODUCT USED FOR UNKNOWN INDICATION
     Dosage: UNK
  7. LEVETIRACETAM. [Suspect]
     Active Substance: LEVETIRACETAM
     Indication: SEIZURE
     Dosage: 750 MG, 2X/DAY (BID)
     Route: 048
  8. MTV [Concomitant]
     Indication: SUPPLEMENTATION THERAPY
     Dosage: DAILY
     Route: 048
  9. ALEVE [Concomitant]
     Active Substance: NAPROXEN SODIUM
     Indication: PAIN
     Dosage: UNK, AS NEEDED (PRN)
     Route: 048
  10. TOPAMAX [Concomitant]
     Active Substance: TOPIRAMATE
     Indication: SEIZURE
     Dosage: 100 MG, 2X/DAY (BID)
     Route: 048

REACTIONS (13)
  - Disorientation [Recovered/Resolved]
  - Laceration [Unknown]
  - Seizure [Not Recovered/Not Resolved]
  - Loss of consciousness [Unknown]
  - Mass [Recovered/Resolved]
  - Scratch [Unknown]
  - Feeling abnormal [Recovered/Resolved]
  - Lung disorder [Unknown]
  - Parkinsonism [Unknown]
  - Back pain [Recovered/Resolved]
  - Fall [Recovered/Resolved]
  - Somnambulism [Recovered/Resolved]
  - Infection [Recovered/Resolved]

NARRATIVE: CASE EVENT DATE: 20150103
